FAERS Safety Report 18410488 (Version 1)
Quarter: 2020Q4

REPORT INFORMATION
  Report Type: Spontaneous
  Country: IT (occurrence: IT)
  Receive Date: 20201021
  Receipt Date: 20201021
  Transmission Date: 20210114
  Serious: Yes (Hospitalization)
  Sender: FDA-Public Use
  Company Number: IT-PFIZER INC-2020408100

PATIENT
  Age: 74 Year
  Sex: Male

DRUGS (8)
  1. CARBOPLATIN. [Suspect]
     Active Substance: CARBOPLATIN
     Indication: LUNG ADENOCARCINOMA
     Dosage: 165.1 MG, CYCLIC
     Route: 042
     Dates: start: 20190416
  2. RANITIDINE. [Concomitant]
     Active Substance: RANITIDINE
     Indication: LUNG ADENOCARCINOMA
     Dosage: 50 MG, CYCLIC
     Route: 042
     Dates: start: 20190416, end: 20190521
  3. CHLORPHENAMINE [Concomitant]
     Active Substance: CHLORPHENIRAMINE MALEATE
     Indication: LUNG ADENOCARCINOMA
     Dosage: 10 MG
     Route: 042
     Dates: start: 20190416, end: 20190521
  4. PEMETREXED. [Suspect]
     Active Substance: PEMETREXED
     Indication: LUNG ADENOCARCINOMA
     Dosage: 800 MG, CYCLIC
     Route: 042
     Dates: start: 20200810
  5. DEXAMETHASONE. [Concomitant]
     Active Substance: DEXAMETHASONE
     Indication: LUNG ADENOCARCINOMA
     Dosage: 16 MG, CYCLIC
     Dates: start: 20190416
  6. GRANISETRON [Concomitant]
     Active Substance: GRANISETRON
     Indication: LUNG ADENOCARCINOMA
     Route: 042
     Dates: start: 20190416
  7. PACLITAXEL. [Suspect]
     Active Substance: PACLITAXEL
     Indication: LUNG ADENOCARCINOMA
     Dosage: 83.7 MG, CYCLIC
     Route: 042
     Dates: start: 20190416, end: 20190521
  8. DURVALUMAB. [Suspect]
     Active Substance: DURVALUMAB
     Indication: LUNG ADENOCARCINOMA
     Dosage: 699.2 MG, CYCLIC
     Route: 042
     Dates: start: 20190822, end: 20191127

REACTIONS (2)
  - Pulmonary embolism [Recovering/Resolving]
  - Dyspnoea [Recovering/Resolving]

NARRATIVE: CASE EVENT DATE: 20200903
